FAERS Safety Report 8833598 (Version 3)
Quarter: 2012Q4

REPORT INFORMATION
  Report Type: 
  Country: US (occurrence: US)
  Receive Date: 20121010
  Receipt Date: 20121212
  Transmission Date: 20130627
  Serious: Yes (Other)
  Sender: FDA-Public Use
  Company Number: US-ROCHE-1143100

PATIENT
  Age: 34 Year
  Sex: Male
  Weight: 118.04 kg

DRUGS (6)
  1. ACCUTANE [Suspect]
     Indication: ACNE
     Route: 065
     Dates: start: 1992, end: 1996
  2. ACCUTANE [Suspect]
     Route: 065
     Dates: start: 200004, end: 200009
  3. ACCUTANE [Suspect]
     Route: 065
     Dates: start: 200610
  4. AMNESTEEM [Suspect]
     Indication: ACNE
     Route: 065
     Dates: start: 200610, end: 200704
  5. ALLEGRA [Concomitant]
  6. FAMVIR [Concomitant]

REACTIONS (10)
  - Crohn^s disease [Unknown]
  - Inflammatory bowel disease [Unknown]
  - Anxiety [Unknown]
  - Stress [Unknown]
  - Anal fistula [Unknown]
  - Oral herpes [Unknown]
  - Dry skin [Unknown]
  - Arthralgia [Unknown]
  - Myalgia [Unknown]
  - Blood triglycerides increased [Unknown]
